FAERS Safety Report 21336514 (Version 11)
Quarter: 2023Q1

REPORT INFORMATION
  Report Type: Report from Study
  Country: JP (occurrence: None)
  Receive Date: 20220915
  Receipt Date: 20230218
  Transmission Date: 20230418
  Serious: Yes (Hospitalization)
  Sender: FDA-Public Use
  Company Number: JP-ROCHE-3165910

PATIENT
  Age: 81 Year
  Sex: Male
  Weight: 47 kg

DRUGS (64)
  1. PLACEBO [Suspect]
     Active Substance: UNSPECIFIED INGREDIENT
     Indication: Small cell lung cancer extensive stage
     Dosage: MOST RECENT DOSE OF PRIOR TO AE ONSET 11/JUL/2022
     Route: 042
     Dates: start: 20210602
  2. ATEZOLIZUMAB [Suspect]
     Active Substance: ATEZOLIZUMAB
     Indication: Small cell lung cancer extensive stage
     Dosage: 1200 MG MOST RECENT DOSE OF ATEZOLIZUMAB PRIOR TO AE ONSET 11/JUL/2022
     Route: 041
     Dates: start: 20210602
  3. CARBOPLATIN [Suspect]
     Active Substance: CARBOPLATIN
     Indication: Small cell lung cancer extensive stage
     Dosage: 262 MG MOST RECENT DOSE PRIOR TO AE 04/AUG/2021
     Route: 042
     Dates: start: 20210602
  4. ETOPOSIDE [Suspect]
     Active Substance: ETOPOSIDE
     Indication: Small cell lung cancer extensive stage
     Dosage: 83 MG MOST RECENT DOSE PRIOR TO AE 04/AUG/2021, 06/AUG/2021
     Route: 042
     Dates: start: 20210602
  5. TEPRENONE [Concomitant]
     Active Substance: TEPRENONE
     Route: 048
     Dates: end: 20210816
  6. DIETARY SUPPLEMENT\PROBIOTICS [Concomitant]
     Active Substance: DIETARY SUPPLEMENT\PROBIOTICS
     Route: 048
  7. LIMAPROST [Concomitant]
     Active Substance: LIMAPROST
     Route: 048
     Dates: end: 20220117
  8. SILODOSIN [Concomitant]
     Active Substance: SILODOSIN
     Indication: Benign prostatic hyperplasia
     Route: 048
  9. METHYLCOBALAMIN [Concomitant]
     Active Substance: METHYLCOBALAMIN
     Indication: Diabetes mellitus
     Route: 048
  10. SITAGLIPTIN [Concomitant]
     Active Substance: SITAGLIPTIN
     Indication: Diabetes mellitus
     Route: 048
  11. ASPIRIN [Concomitant]
     Active Substance: ASPIRIN
     Route: 048
  12. VONOPRAZAN FUMARATE [Concomitant]
     Active Substance: VONOPRAZAN FUMARATE
     Route: 048
  13. RUPATADINE FUMARATE [Concomitant]
     Active Substance: RUPATADINE FUMARATE
     Indication: Dermatitis
     Route: 048
     Dates: end: 20220117
  14. RUPATADINE FUMARATE [Concomitant]
     Active Substance: RUPATADINE FUMARATE
     Indication: Pruritus
  15. TRIAZOLAM [Concomitant]
     Active Substance: TRIAZOLAM
     Indication: Insomnia
     Route: 048
     Dates: start: 20221101
  16. TRIAZOLAM [Concomitant]
     Active Substance: TRIAZOLAM
     Route: 048
     Dates: start: 20211101, end: 20220825
  17. TRIAZOLAM [Concomitant]
     Active Substance: TRIAZOLAM
     Route: 048
     Dates: end: 20211031
  18. SUVOREXANT [Concomitant]
     Active Substance: SUVOREXANT
     Indication: Insomnia
     Route: 048
     Dates: end: 20220825
  19. AMOXICILLIN\CLAVULANATE POTASSIUM [Concomitant]
     Active Substance: AMOXICILLIN\CLAVULANATE POTASSIUM
     Indication: Dental caries
     Route: 048
     Dates: start: 20210528, end: 20210531
  20. ACETAMINOPHEN [Concomitant]
     Active Substance: ACETAMINOPHEN
     Indication: Dental caries
     Route: 048
     Dates: start: 20210528, end: 20210620
  21. ACETAMINOPHEN [Concomitant]
     Active Substance: ACETAMINOPHEN
     Route: 048
     Dates: start: 20220418
  22. LEVOFLOXACIN HEMIHYDRATE [Concomitant]
     Active Substance: LEVOFLOXACIN
     Indication: Febrile neutropenia
     Route: 048
     Dates: start: 20210611, end: 20210620
  23. CALCIUM CARBONATE [Concomitant]
     Active Substance: CALCIUM CARBONATE
  24. CHOLECALCIFEROL [Concomitant]
     Active Substance: CHOLECALCIFEROL
  25. MAGNESIUM CARBONATE [Concomitant]
     Active Substance: MAGNESIUM CARBONATE
     Route: 048
     Dates: start: 20210609
  26. DENOSUMAB [Concomitant]
     Active Substance: DENOSUMAB
     Route: 058
     Dates: start: 20210614, end: 20210614
  27. DENOSUMAB [Concomitant]
     Active Substance: DENOSUMAB
     Route: 058
     Dates: start: 20230111, end: 20230111
  28. DENOSUMAB [Concomitant]
     Active Substance: DENOSUMAB
     Route: 058
     Dates: start: 20221212, end: 20221212
  29. DENOSUMAB [Concomitant]
     Active Substance: DENOSUMAB
     Route: 058
     Dates: start: 20221008, end: 20221008
  30. PALONOSETRON HYDROCHLORIDE [Concomitant]
     Active Substance: PALONOSETRON HYDROCHLORIDE
     Route: 042
     Dates: start: 20210602, end: 20210602
  31. PALONOSETRON HYDROCHLORIDE [Concomitant]
     Active Substance: PALONOSETRON HYDROCHLORIDE
     Route: 042
     Dates: start: 20210623, end: 20210623
  32. PALONOSETRON HYDROCHLORIDE [Concomitant]
     Active Substance: PALONOSETRON HYDROCHLORIDE
     Route: 042
     Dates: start: 20210714, end: 20210714
  33. PALONOSETRON HYDROCHLORIDE [Concomitant]
     Active Substance: PALONOSETRON HYDROCHLORIDE
     Route: 042
     Dates: start: 20210804, end: 20210804
  34. LEVOFLOXACIN [Concomitant]
     Active Substance: LEVOFLOXACIN
     Indication: Febrile neutropenia
     Route: 048
     Dates: start: 20210726, end: 20210731
  35. COMIRNATY [Concomitant]
     Active Substance: TOZINAMERAN
     Route: 030
     Dates: start: 20210702, end: 20210702
  36. COMIRNATY [Concomitant]
     Active Substance: TOZINAMERAN
     Route: 030
     Dates: start: 20210730, end: 20210730
  37. COMIRNATY [Concomitant]
     Active Substance: TOZINAMERAN
     Route: 030
     Dates: start: 20220721, end: 20220721
  38. AMPICILLIN SODIUM\SULBACTAM SODIUM [Concomitant]
     Active Substance: AMPICILLIN SODIUM\SULBACTAM SODIUM
     Indication: Pneumonia
     Route: 042
     Dates: start: 20211201, end: 20211210
  39. OXYGEN [Concomitant]
     Active Substance: OXYGEN
     Indication: Pneumonia
     Route: 042
     Dates: start: 20211201, end: 20211210
  40. AMLODIPINE BESYLATE [Concomitant]
     Active Substance: AMLODIPINE BESYLATE
     Indication: Hypertension
     Route: 048
     Dates: start: 20211101, end: 20220825
  41. SALMETEROL XINAFOATE [Concomitant]
     Active Substance: SALMETEROL XINAFOATE
     Indication: Emphysema
     Dates: start: 20211208
  42. PIRENOXINE [Concomitant]
     Active Substance: PIRENOXINE
     Indication: Cataract
  43. HEPARINOID [Concomitant]
     Indication: Dermatitis
     Dates: start: 20211222
  44. OLOPATADINE HYDROCHLORIDE [Concomitant]
     Active Substance: OLOPATADINE HYDROCHLORIDE
     Indication: Dermatitis
     Route: 048
     Dates: start: 20220117, end: 20220825
  45. SEIROGAN [Concomitant]
     Route: 048
     Dates: start: 20220623
  46. DEXAMETHASONE SODIUM PHOSPHATE [Concomitant]
     Active Substance: DEXAMETHASONE SODIUM PHOSPHATE
     Route: 042
     Dates: start: 20210602, end: 20210604
  47. DEXAMETHASONE SODIUM PHOSPHATE [Concomitant]
     Active Substance: DEXAMETHASONE SODIUM PHOSPHATE
     Route: 042
     Dates: start: 20210623, end: 20210625
  48. DEXAMETHASONE SODIUM PHOSPHATE [Concomitant]
     Active Substance: DEXAMETHASONE SODIUM PHOSPHATE
     Route: 042
     Dates: start: 20210714, end: 20210716
  49. DEXAMETHASONE SODIUM PHOSPHATE [Concomitant]
     Active Substance: DEXAMETHASONE SODIUM PHOSPHATE
     Route: 042
     Dates: start: 20210804, end: 20210806
  50. BETAMETHASONE VALERATE\GENTAMICIN SULFATE [Concomitant]
     Active Substance: BETAMETHASONE VALERATE\GENTAMICIN SULFATE
     Indication: Dermatitis
     Dates: start: 20211222, end: 20211222
  51. LEMBOREXANT [Concomitant]
     Active Substance: LEMBOREXANT
     Indication: Insomnia
     Route: 048
     Dates: start: 20220826
  52. PREDNISOLONE [Concomitant]
     Active Substance: PREDNISOLONE
     Indication: Gait disturbance
     Route: 048
     Dates: start: 20221017, end: 20221030
  53. PREDNISOLONE [Concomitant]
     Active Substance: PREDNISOLONE
     Route: 048
     Dates: start: 20221007, end: 20221016
  54. PREDNISOLONE [Concomitant]
     Active Substance: PREDNISOLONE
     Route: 048
     Dates: start: 20221031, end: 20221113
  55. PREDNISOLONE [Concomitant]
     Active Substance: PREDNISOLONE
     Route: 048
     Dates: start: 20220930, end: 20221006
  56. PREDNISOLONE [Concomitant]
     Active Substance: PREDNISOLONE
     Route: 048
     Dates: start: 20220923, end: 20220929
  57. PREDNISOLONE [Concomitant]
     Active Substance: PREDNISOLONE
     Route: 048
     Dates: start: 20221114
  58. RAMELTEON [Concomitant]
     Active Substance: RAMELTEON
     Indication: Insomnia
     Route: 048
     Dates: start: 20221031
  59. SODIUM PICOSULFATE MONOHYDRATE [Concomitant]
     Active Substance: SODIUM PICOSULFATE MONOHYDRATE
     Indication: Constipation
     Route: 048
     Dates: start: 20220929, end: 20220929
  60. SPIKEVAX [Concomitant]
     Active Substance: ELASOMERAN
     Route: 030
     Dates: start: 20221108, end: 20221108
  61. ALENDRONATE SODIUM [Concomitant]
     Active Substance: ALENDRONATE SODIUM
     Route: 048
     Dates: start: 20221005
  62. SENNOSIDE A;SENNOSIDE B [Concomitant]
     Route: 048
     Dates: start: 20220928, end: 20220928
  63. SULFAMETHOXAZOLE\TRIMETHOPRIM [Concomitant]
     Active Substance: SULFAMETHOXAZOLE\TRIMETHOPRIM
     Route: 048
     Dates: start: 20220929
  64. MAGNESIUM OXIDE [Concomitant]
     Active Substance: MAGNESIUM OXIDE
     Route: 048
     Dates: start: 20221031

REACTIONS (1)
  - Gait disturbance [Recovering/Resolving]

NARRATIVE: CASE EVENT DATE: 20220725
